FAERS Safety Report 21733355 (Version 1)
Quarter: 2022Q4

REPORT INFORMATION
  Report Type: Spontaneous
  Country: US (occurrence: US)
  Receive Date: 20221215
  Receipt Date: 20221215
  Transmission Date: 20230113
  Serious: Yes (Other)
  Sender: FDA-Public Use
  Company Number: US-ARBOR PHARMACEUTICALS, LLC-US-2022ARB003044

PATIENT
  Age: 57 Year
  Sex: Female

DRUGS (1)
  1. EDARBYCLOR [Suspect]
     Active Substance: AZILSARTAN KAMEDOXOMIL\CHLORTHALIDONE
     Indication: Product used for unknown indication
     Dosage: 2 TABLETS FOR 5 DOSES WHICH IS 2.5 DAYS
     Route: 065
     Dates: start: 202212

REACTIONS (7)
  - Musculoskeletal chest pain [Unknown]
  - Arthralgia [Unknown]
  - Eructation [Unknown]
  - Dehydration [Unknown]
  - Insomnia [Unknown]
  - Muscle spasms [Unknown]
  - Extra dose administered [Unknown]

NARRATIVE: CASE EVENT DATE: 20221201
